FAERS Safety Report 10717987 (Version 3)
Quarter: 2015Q1

REPORT INFORMATION
  Report Type: Spontaneous
  Country: JP (occurrence: JP)
  Receive Date: 20150116
  Receipt Date: 20150305
  Transmission Date: 20150721
  Serious: Yes (Other)
  Sender: FDA-Public Use
  Company Number: JP-ALLERGAN-1500864US

PATIENT
  Age: 77 Year
  Sex: Female

DRUGS (2)
  1. RYSMON TG [Concomitant]
     Active Substance: TIMOLOL MALEATE
     Dosage: UNKNOWN
     Dates: start: 20130222, end: 20150109
  2. ALPHAGAN P [Suspect]
     Active Substance: BRIMONIDINE TARTRATE
     Indication: GLAUCOMA
     Dosage: 2 GTT, BID
     Route: 047
     Dates: start: 20130222, end: 20150109

REACTIONS (4)
  - Fall [Recovered/Resolved]
  - Inappropriate schedule of drug administration [Unknown]
  - Syncope [Recovered/Resolved]
  - Dizziness [Recovered/Resolved]

NARRATIVE: CASE EVENT DATE: 20141031
